FAERS Safety Report 5321212-9 (Version None)
Quarter: 2007Q2

REPORT INFORMATION
  Report Type: 
  Country: None (occurrence: None)
  Receive Date: 20070510
  Receipt Date: 20070430
  Transmission Date: 20071010
  Serious: Yes (Hospitalization)
  Sender: FDA-Public Use
  Company Number: DK-AVENTIS-200712083EU

PATIENT
  Age: 81 Year
  Sex: Female

DRUGS (1)
  1. KLEXANE                            /01708202/ [Suspect]
     Indication: THROMBOSIS PROPHYLAXIS
     Route: 042
     Dates: end: 20070430

REACTIONS (1)
  - SKIN NECROSIS [None]
